FAERS Safety Report 9548756 (Version 1)
Quarter: 2013Q2

REPORT INFORMATION
  Report Type: Spontaneous
  Country: US (occurrence: None)
  Receive Date: 20130607
  Receipt Date: 20130607
  Transmission Date: 20140414
  Serious: Yes (Hospitalization, Other)
  Sender: FDA-Public Use
  Company Number: 078935

PATIENT
  Sex: 0

DRUGS (1)
  1. ROTIGOTINE [Suspect]

REACTIONS (3)
  - Rash [None]
  - Hallucination [None]
  - Drug prescribing error [None]
